FAERS Safety Report 8349013-8 (Version None)
Quarter: 2012Q2

REPORT INFORMATION
  Report Type: 
  Country: None (occurrence: None)
  Receive Date: 20120510
  Receipt Date: 20120430
  Transmission Date: 20120825
  Serious: No
  Sender: FDA-Public Use
  Company Number: CA-JNJFOC-20120501925

PATIENT
  Sex: Female
  Weight: 57.9 kg

DRUGS (10)
  1. DILTIAZEM [Concomitant]
     Route: 065
  2. METFORMIN HCL [Concomitant]
     Route: 065
  3. NEXIUM [Concomitant]
     Route: 065
  4. IMURAN [Concomitant]
     Route: 065
  5. HYDROCHLOROTHIAZIDE [Concomitant]
     Route: 065
  6. OXYBUTYNIN [Concomitant]
     Route: 065
  7. REMICADE [Suspect]
     Indication: CROHN'S DISEASE
     Route: 042
     Dates: start: 20091026
  8. NITROGLYCERIN [Concomitant]
     Route: 065
  9. RAMIPRIL [Concomitant]
     Route: 065
  10. ALL OTHER THERAPEUTIC PRODUCTS [Concomitant]
     Route: 065

REACTIONS (1)
  - HERPES ZOSTER [None]
